FAERS Safety Report 6947204-1 (Version None)
Quarter: 2010Q3

REPORT INFORMATION
  Report Type: 
  Country: None (occurrence: None)
  Receive Date: 20100827
  Receipt Date: 20090903
  Transmission Date: 20110219
  Serious: No
  Sender: FDA-Public Use
  Company Number: US-ABBOTT-09P-163-0595602-00

PATIENT
  Sex: Female

DRUGS (10)
  1. NIASPAN [Suspect]
     Indication: HIGH DENSITY LIPOPROTEIN DECREASED
     Dates: start: 20090901
  2. DIOVAN [Concomitant]
     Indication: HYPERTENSION
  3. ISRADIPINE [Concomitant]
     Indication: HYPERTENSION
  4. IMIPRAMINE [Concomitant]
     Indication: INCONTINENCE
  5. NIZATIDINE [Concomitant]
     Indication: GASTROOESOPHAGEAL REFLUX DISEASE
  6. DICYCLOMINE [Concomitant]
     Indication: GASTROOESOPHAGEAL REFLUX DISEASE
  7. RELAFEN [Concomitant]
     Indication: ANTIINFLAMMATORY THERAPY
  8. ASPIRIN [Concomitant]
     Indication: PRODUCT USED FOR UNKNOWN INDICATION
  9. VITAMIN B6 [Concomitant]
     Indication: PARAESTHESIA
  10. MULTI-VITAMIN [Concomitant]
     Indication: PRODUCT USED FOR UNKNOWN INDICATION

REACTIONS (1)
  - FLUSHING [None]
